FAERS Safety Report 9684649 (Version 3)
Quarter: 2013Q4

REPORT INFORMATION
  Report Type: Spontaneous
  Country: JP (occurrence: JP)
  Receive Date: 20131112
  Receipt Date: 20131202
  Transmission Date: 20140711
  Serious: Yes (Death)
  Sender: FDA-Public Use
  Company Number: JP-PFIZER INC-2013317841

PATIENT
  Age: 12 Year
  Sex: Male

DRUGS (5)
  1. ETOPOSIDE [Suspect]
     Indication: RENAL CANCER
     Dosage: UNK
  2. TOPOTECAN HYDROCHLORIDE [Suspect]
     Indication: RENAL CANCER
     Dosage: UNK
  3. IRINOTECAN HCL [Suspect]
     Indication: RENAL CANCER
     Dosage: UNK
  4. IFOSFAMIDE [Suspect]
     Indication: RENAL CANCER
     Dosage: UNK
  5. CYCLOPHOSPHAMIDE [Suspect]
     Indication: RENAL CANCER
     Dosage: UNK

REACTIONS (1)
  - Erosive duodenitis [Fatal]
